FAERS Safety Report 7409773-7 (Version None)
Quarter: 2011Q2

REPORT INFORMATION
  Report Type: 
  Country: None (occurrence: None)
  Receive Date: 20110412
  Receipt Date: 20080905
  Transmission Date: 20111010
  Serious: Yes (Hospitalization, Other)
  Sender: FDA-Public Use
  Company Number: US-BAYER-2011-029243

PATIENT
  Age: 62 Year
  Sex: Female
  Weight: 57 kg

DRUGS (19)
  1. FRESH FROZEN PLASMA [Concomitant]
     Dosage: 2 U, UNK
     Dates: start: 20070713, end: 20070713
  2. OMNIPAQUE 140 [Concomitant]
     Dosage: 125 ML, UNK
     Dates: start: 20070712
  3. FLONASE [Concomitant]
     Dosage: 1 SQUIRT, DAILY PRN
     Route: 045
  4. HEPARIN [Concomitant]
     Dosage: 10000 U, UNK
     Route: 042
     Dates: start: 20070713
  5. HEPARIN [Concomitant]
     Dosage: 25000 U, UNK
     Dates: start: 20070713
  6. OMNIPAQUE 140 [Concomitant]
     Dosage: 125 ML, UNK
     Dates: start: 20070713
  7. ACETYLSALICYLIC ACID SRT [Concomitant]
     Dosage: 81 MG, QD
     Route: 048
     Dates: end: 20070712
  8. MANNITOL [Concomitant]
     Dosage: 12.5 G, UNK
     Dates: start: 20070713
  9. OMNIPAQUE 140 [Concomitant]
     Dosage: 350 ML, UNK
     Dates: start: 20070712
  10. ZIAC [Concomitant]
     Dosage: 5/6.25 MG, QD
     Route: 048
  11. ANCEF [Concomitant]
     Dosage: 1 G, UNK
     Route: 042
     Dates: start: 20070713
  12. SODIUM BICARBONATE [Concomitant]
     Dosage: 44.7 MEQ, UNK
     Dates: start: 20070713
  13. PLATELETS [Concomitant]
     Dosage: UNK
     Dates: start: 20070714, end: 20070714
  14. TRASYLOL [Suspect]
     Indication: CORONARY ARTERY BYPASS
     Dosage: 300 ML, UNK
     Route: 042
     Dates: start: 20070713, end: 20070713
  15. ZETIA [Concomitant]
     Dosage: 10 MG, QD
     Route: 048
  16. THROMBIN LOCAL SOLUTION [Concomitant]
     Dosage: 5000 U, UNK
     Dates: start: 20070713
  17. RED BLOOD CELLS [Concomitant]
     Dosage: 4 U, UNK
     Dates: start: 20070713, end: 20070713
  18. VERSED [Concomitant]
     Dosage: 1 MG, UNK
     Route: 042
     Dates: start: 20070713
  19. FENTANYL [Concomitant]
     Dosage: 50 MG, UNK
     Route: 042
     Dates: start: 20070713

REACTIONS (6)
  - RENAL FAILURE [None]
  - MULTI-ORGAN FAILURE [None]
  - RENAL IMPAIRMENT [None]
  - CEREBROVASCULAR ACCIDENT [None]
  - UNEVALUABLE EVENT [None]
  - MYOCARDIAL INFARCTION [None]
